FAERS Safety Report 4852237-5 (Version None)
Quarter: 2005Q4

REPORT INFORMATION
  Report Type: 
  Country: None (occurrence: None)
  Receive Date: 20051123
  Receipt Date: 20050602
  Transmission Date: 20060501
  Serious: Yes (Hospitalization)
  Sender: FDA-Public Use
  Company Number: US-JNJFOC-20050601465

PATIENT
  Age: 11 Year
  Sex: Male
  Weight: 36.5 kg

DRUGS (3)
  1. LEVOFLOXACIN [Suspect]
     Indication: PERICARDITIS
     Dosage: 500 MG
     Dates: start: 20050527
  2. LASIX [Concomitant]
  3. VANCOMYCIN [Concomitant]

REACTIONS (1)
  - PYREXIA [None]
